FAERS Safety Report 14571572 (Version 6)
Quarter: 2018Q2

REPORT INFORMATION
  Report Type: Report from Study
  Country: JP (occurrence: JP)
  Receive Date: 20180226
  Receipt Date: 20180620
  Transmission Date: 20180711
  Serious: Yes (Hospitalization, Other)
  Sender: FDA-Public Use
  Company Number: JP-AMGEN-JPNCT2017074232

PATIENT
  Age: 81 Year
  Sex: Female
  Weight: 32.33 kg

DRUGS (18)
  1. FLUOROURACIL. [Suspect]
     Active Substance: FLUOROURACIL
     Indication: RECTAL CANCER
     Dosage: 500 MG, Q2WEEKS
     Route: 040
     Dates: start: 20160930, end: 20161013
  2. FLUOROURACIL. [Suspect]
     Active Substance: FLUOROURACIL
     Dosage: 200 MG, Q2WK
     Route: 040
     Dates: start: 20170330, end: 20180201
  3. MAGNESIUM OXIDE. [Concomitant]
     Active Substance: MAGNESIUM OXIDE
     Indication: DEFAECATION DISORDER
     Dosage: 330 MG, TID
     Route: 048
  4. IBANDRONATE SODIUM. [Concomitant]
     Active Substance: IBANDRONATE SODIUM
     Indication: OSTEOPOROSIS
     Dosage: 1 MG, MONTHLY
     Route: 042
     Dates: start: 20171225
  5. OXALIPLATIN. [Concomitant]
     Active Substance: OXALIPLATIN
     Dosage: 70 MG, Q2WEEKS
     Route: 041
     Dates: start: 20161110, end: 20170302
  6. PANITUMUMAB [Suspect]
     Active Substance: PANITUMUMAB
     Dosage: 200 MG, Q2WK
     Route: 041
     Dates: start: 20161110, end: 20170302
  7. CALCIUM LEVOFOLINATE [Suspect]
     Active Substance: LEVOLEUCOVORIN CALCIUM
     Indication: RECTAL CANCER
     Dosage: 250 MG, Q2WEEKS
     Route: 041
     Dates: start: 20160930, end: 20161013
  8. FLUOROURACIL. [Suspect]
     Active Substance: FLUOROURACIL
     Dosage: 3050 MG, Q2WEEKS
     Route: 041
     Dates: start: 20160930, end: 20161013
  9. FLUOROURACIL. [Suspect]
     Active Substance: FLUOROURACIL
     Dosage: 2550 UNK, Q2WK
     Route: 041
     Dates: start: 20161110, end: 20170302
  10. CALCIUM LEVOFOLINATE [Suspect]
     Active Substance: LEVOLEUCOVORIN CALCIUM
     Dosage: 225 MG, Q2WEEKS
     Route: 041
     Dates: start: 20170216, end: 20170302
  11. PANITUMUMAB [Suspect]
     Active Substance: PANITUMUMAB
     Dosage: 200 MG, Q2WK
     Route: 041
     Dates: start: 20170330, end: 20180201
  12. OXALIPLATIN. [Concomitant]
     Active Substance: OXALIPLATIN
     Indication: RECTAL CANCER
     Dosage: 100 MG, Q2WEEKS
     Route: 041
     Dates: start: 20160930, end: 20161013
  13. HEPARINOID [Concomitant]
     Active Substance: CHONDROITIN SULFATE (BOVINE)
     Indication: DRY SKIN PROPHYLAXIS
     Dosage: UNK
     Route: 062
     Dates: start: 20161125
  14. FLUOROURACIL. [Suspect]
     Active Substance: FLUOROURACIL
     Dosage: 200 MG, Q2WK
     Route: 040
     Dates: start: 20161110, end: 20170302
  15. FLUOROURACIL. [Suspect]
     Active Substance: FLUOROURACIL
     Dosage: 2250 MG, Q2WEEKS
     Route: 041
     Dates: start: 20170330, end: 20180201
  16. CALCIUM LEVOFOLINATE [Suspect]
     Active Substance: LEVOLEUCOVORIN CALCIUM
     Dosage: UNK UNK, Q2WEEKS
     Route: 041
     Dates: start: 20161110, end: 20170202
  17. CALCIUM LEVOFOLINATE [Suspect]
     Active Substance: LEVOLEUCOVORIN CALCIUM
     Dosage: 225 MG, Q2WEEKS
     Route: 041
     Dates: start: 20170330, end: 20180201
  18. PANITUMUMAB [Suspect]
     Active Substance: PANITUMUMAB
     Indication: RECTAL CANCER
     Dosage: 200 MG, Q2WK
     Route: 041
     Dates: start: 20160930, end: 20161013

REACTIONS (11)
  - Hypomagnesaemia [Unknown]
  - Rash [Unknown]
  - Electrolyte imbalance [Recovered/Resolved]
  - Infection [Recovered/Resolved]
  - Neutrophil count decreased [Recovered/Resolved]
  - Hypoaesthesia [Unknown]
  - Hypokalaemia [Unknown]
  - Hypokalaemia [Recovered/Resolved]
  - White blood cell count decreased [Recovered/Resolved]
  - Decreased appetite [Recovered/Resolved]
  - Neuropathy peripheral [Unknown]

NARRATIVE: CASE EVENT DATE: 20180210
